FAERS Safety Report 6399527-5 (Version None)
Quarter: 2009Q4

REPORT INFORMATION
  Report Type: 
  Country: None (occurrence: None)
  Receive Date: 20091014
  Receipt Date: 20091006
  Transmission Date: 20100525
  Serious: Yes (Other)
  Sender: FDA-Public Use
  Company Number: JP-BAYER-200910206BYL

PATIENT
  Age: 73 Year
  Sex: Male
  Weight: 61 kg

DRUGS (6)
  1. NEXAVAR [Suspect]
     Indication: RENAL CELL CARCINOMA STAGE IV
     Dosage: UNIT DOSE: 200 MG
     Route: 048
     Dates: start: 20081215, end: 20081226
  2. NEXAVAR [Suspect]
     Dosage: TOTAL DAILY DOSE: 400 MG  UNIT DOSE: 200 MG
     Route: 048
     Dates: start: 20081227, end: 20090119
  3. INTERFERON ALFA [Concomitant]
     Route: 065
  4. PURSENNID [Concomitant]
     Indication: CONSTIPATION
     Dosage: UNIT DOSE: 12 MG
     Route: 048
     Dates: start: 20081222
  5. PURSENNID [Concomitant]
     Dosage: UNIT DOSE: 12 MG
     Route: 048
     Dates: start: 20090216
  6. LOXONIN [Concomitant]
     Indication: HYPERTHERMIA
     Dosage: UNIT DOSE: 60 MG
     Route: 048
     Dates: start: 20090707

REACTIONS (3)
  - HEPATIC FUNCTION ABNORMAL [None]
  - HYPERTENSION [None]
  - PALMAR-PLANTAR ERYTHRODYSAESTHESIA SYNDROME [None]
